FAERS Safety Report 12648048 (Version 1)
Quarter: 2016Q3

REPORT INFORMATION
  Report Type: Spontaneous
  Country: US (occurrence: None)
  Receive Date: 20160811
  Receipt Date: 20160811
  Transmission Date: 20161109
  Serious: Yes (Death)
  Sender: FDA-Public Use
  Company Number: None

PATIENT
  Age: 59 Year
  Sex: Female
  Weight: 61.77 kg

DRUGS (1)
  1. AVASTIN [Suspect]
     Active Substance: BEVACIZUMAB
     Indication: ASTROCYTOMA
     Dosage: INTRAVENOUS (NOT OTHERWISE SPECIFIC)
     Route: 042
     Dates: start: 20151022, end: 20151119

REACTIONS (3)
  - Vomiting [None]
  - Hypoxia [None]
  - Unresponsive to stimuli [None]

NARRATIVE: CASE EVENT DATE: 20151211
